FAERS Safety Report 15789072 (Version 1)
Quarter: 2018Q4

REPORT INFORMATION
  Report Type: Spontaneous
  Country: US (occurrence: US)
  Receive Date: 20181228
  Receipt Date: 20181228
  Transmission Date: 20190205
  Serious: No
  Sender: FDA-Public Use
  Company Number: None

PATIENT

DRUGS (2)
  1. XYLOCAINE [Suspect]
     Active Substance: LIDOCAINE HYDROCHLORIDE
     Dosage: ?          OTHER FREQUENCY:SINGLE DOSE VIAL;?
     Route: 058
  2. SENSORCAINE [Suspect]
     Active Substance: BUPIVACAINE HYDROCHLORIDE
     Dosage: ?          OTHER FREQUENCY:SINGLE DOSE VIAL;?
     Route: 058

REACTIONS (2)
  - Product appearance confusion [None]
  - Product label confusion [None]
